FAERS Safety Report 9659415 (Version 2)
Quarter: 2013Q4

REPORT INFORMATION
  Report Type: Spontaneous
  Country: FR (occurrence: FR)
  Receive Date: 20131031
  Receipt Date: 20131213
  Transmission Date: 20140711
  Serious: Yes (Other)
  Sender: FDA-Public Use
  Company Number: FR-JNJFOC-20131014425

PATIENT
  Age: 12 Year
  Sex: Male
  Weight: 73 kg

DRUGS (3)
  1. RISPERDAL [Suspect]
     Indication: ABNORMAL BEHAVIOUR
     Dosage: 1/4 IN THE MORNING, 1/4 IN THE EVENING
     Route: 048
     Dates: start: 20131023, end: 20131204
  2. RISPERDAL [Suspect]
     Indication: ABNORMAL BEHAVIOUR
     Dosage: 1/4 IN THE MORNING
     Route: 048
     Dates: start: 20131204
  3. RISPERDAL [Suspect]
     Indication: ABNORMAL BEHAVIOUR
     Dosage: 1/4 IN THE MORNING, 1/2 IN THE EVENING
     Route: 048
     Dates: start: 20130626, end: 20131023

REACTIONS (11)
  - Lymphopenia [Unknown]
  - Leukopenia [Recovering/Resolving]
  - Intentional drug misuse [Unknown]
  - Stress [Unknown]
  - Weight increased [Not Recovered/Not Resolved]
  - Asthenia [Recovering/Resolving]
  - Feeling abnormal [Unknown]
  - Nausea [Recovered/Resolved]
  - Abdominal pain [Unknown]
  - Treatment noncompliance [Unknown]
  - Wrong technique in drug usage process [Unknown]
